FAERS Safety Report 4631008-9 (Version None)
Quarter: 2005Q2

REPORT INFORMATION
  Report Type: 
  Country: None (occurrence: None)
  Receive Date: 20050406
  Receipt Date: 20050406
  Transmission Date: 20051028
  Serious: Yes (Hospitalization)
  Sender: FDA-Public Use
  Company Number: None

PATIENT
  Age: 42 Year
  Sex: Male
  Weight: 90.7194 kg

DRUGS (1)
  1. AVONEX [Suspect]
     Indication: MULTIPLE SCLEROSIS
     Dosage: 30 MG  MONTHLY INTRAMUSCULAR
     Route: 030
     Dates: start: 20010822, end: 20030428

REACTIONS (2)
  - CEREBROVASCULAR ACCIDENT [None]
  - HAEMATOMA [None]
